FAERS Safety Report 14064557 (Version 2)
Quarter: 2018Q4

REPORT INFORMATION
  Report Type: Spontaneous
  Country: CH (occurrence: CH)
  Receive Date: 20171009
  Receipt Date: 20181212
  Transmission Date: 20190204
  Serious: Yes (Death, Hospitalization)
  Sender: FDA-Public Use
  Company Number: CH-PFIZER INC-2017426608

PATIENT
  Age: 82 Year
  Sex: Male

DRUGS (13)
  1. DIGOXINE [Suspect]
     Active Substance: DIGOXIN
     Dosage: 0.125MG, 1X/DAY
     Route: 048
     Dates: end: 20170820
  2. RIVOTRIL [Concomitant]
     Active Substance: CLONAZEPAM
     Dosage: 0.5 MG, 1X/DAY
     Route: 048
     Dates: start: 20170820
  3. DAFALGAN [Concomitant]
     Active Substance: ACETAMINOPHEN
     Dosage: 1000 MG, 3X/DAY
     Route: 048
  4. LAXOBERON [Concomitant]
     Active Substance: SODIUM PICOSULFATE
     Dosage: 5 MG, 1X/DAY
     Route: 048
  5. STRUCTUM /02117803/ [Concomitant]
     Dosage: 800 MG, 1X/DAY
     Route: 048
  6. LYRICA [Suspect]
     Active Substance: PREGABALIN
     Dosage: 75 MG, 2X/DAY (ALSO REPORTED AS 150MG IN TOTAL)
     Route: 048
     Dates: end: 20170820
  7. TOVIAZ [Suspect]
     Active Substance: FESOTERODINE FUMARATE
     Dosage: 4 MG, 1X/DAY
     Route: 048
     Dates: end: 20170824
  8. MODURETIC 5-50 [Suspect]
     Active Substance: AMILORIDE HYDROCHLORIDE\HYDROCHLOROTHIAZIDE
     Dosage: 1 DF (2.5/25), 1X/DAY
     Route: 048
  9. BELOC ZOK [Suspect]
     Active Substance: METOPROLOL SUCCINATE
     Dosage: 50 MG, 2X/DAY (ALSO REPORTED AS 100MG/DAY)
     Route: 048
  10. PRAVASTATINE [Concomitant]
     Active Substance: PRAVASTATIN
     Dosage: 40 MG, 1X/DAY
     Route: 048
  11. XARELTO [Suspect]
     Active Substance: RIVAROXABAN
     Indication: ATRIAL FIBRILLATION
     Dosage: 20 MG, 1X/DAY
     Route: 048
  12. MOVICOL [Concomitant]
     Active Substance: POLYETHYLENE GLYCOL 3350\POTASSIUM CHLORIDE\SODIUM BICARBONATE\SODIUM CHLORIDE
     Dosage: 1 DF, 1X/DAY, 1 DF = 1 SACHET
     Route: 048
  13. RASILEZ [Concomitant]
     Active Substance: ALISKIREN
     Dosage: 300 MG, 1X/DAY
     Route: 048
     Dates: start: 20170823

REACTIONS (3)
  - Craniocerebral injury [Unknown]
  - Fall [Recovered/Resolved]
  - Haematoma [Recovered/Resolved]

NARRATIVE: CASE EVENT DATE: 20170819
